FAERS Safety Report 20323842 (Version 3)
Quarter: 2022Q1

REPORT INFORMATION
  Report Type: Other
  Country: CN (occurrence: CN)
  Receive Date: 20220111
  Receipt Date: 20220120
  Transmission Date: 20220423
  Serious: Yes (Life-Threatening, Other)
  Sender: FDA-Public Use
  Company Number: CN-GE HEALTHCARE-2022CSU000094

PATIENT

DRUGS (2)
  1. VISIPAQUE [Suspect]
     Active Substance: IODIXANOL
     Indication: Computerised tomogram thorax
     Dosage: 80 ML, SINGLE
     Route: 040
     Dates: start: 20211229, end: 20211229
  2. VISIPAQUE [Suspect]
     Active Substance: IODIXANOL
     Indication: Dyspnoea

REACTIONS (5)
  - Dysphonia [Recovering/Resolving]
  - Laryngeal oedema [Recovered/Resolved]
  - Laryngeal discomfort [Recovering/Resolving]
  - Swelling [Recovering/Resolving]
  - Flushing [Recovering/Resolving]

NARRATIVE: CASE EVENT DATE: 20211229
